FAERS Safety Report 14895854 (Version 2)
Quarter: 2018Q2

REPORT INFORMATION
  Report Type: Spontaneous
  Country: PT (occurrence: PT)
  Receive Date: 20180515
  Receipt Date: 20180525
  Transmission Date: 20180711
  Serious: Yes (Hospitalization, Other)
  Sender: FDA-Public Use
  Company Number: PT-IMPAX LABORATORIES, INC-2018-IPXL-01574

PATIENT
  Age: 68 Year
  Sex: Male

DRUGS (10)
  1. METFORMIN HYDROCHLORIDE ER [Suspect]
     Active Substance: METFORMIN HYDROCHLORIDE
     Indication: TYPE 2 DIABETES MELLITUS
     Dosage: 3000 MG, DAILY
     Route: 065
  2. COLCHICINE. [Interacting]
     Active Substance: COLCHICINE
     Indication: GOUTY ARTHRITIS
     Dosage: 0.5 MG (TOOK 4 TABLETS), UNK
     Route: 065
  3. CYNARA CARDUNCULUS [Interacting]
     Active Substance: HERBALS
     Indication: GOUT
     Dosage: 1.5 L, INFUSION
     Route: 050
  4. GLICLAZIDE [Interacting]
     Active Substance: GLICLAZIDE
     Indication: TYPE 2 DIABETES MELLITUS
     Dosage: 30 MG, TWICE A DAY
     Route: 065
  5. ENALAPRIL + HIDROCLOROTIAZIDA [Interacting]
     Active Substance: ENALAPRIL MALEATE\HYDROCHLOROTHIAZIDE
     Indication: HYPERTENSION
     Dosage: 20MG + 12.5MG/DAY
     Route: 065
  6. ASPIRIN. [Interacting]
     Active Substance: ASPIRIN
     Indication: PRODUCT USED FOR UNKNOWN INDICATION
     Dosage: 150 MG, DAILY
     Route: 065
  7. DIAZEPAM. [Interacting]
     Active Substance: DIAZEPAM
     Indication: PRODUCT USED FOR UNKNOWN INDICATION
     Dosage: 5 MG, DAILY
     Route: 065
  8. CLONIXIN [Interacting]
     Active Substance: CLONIXIN
     Indication: GOUTY ARTHRITIS
     Dosage: 300MG, 2 DF, UNK
     Route: 065
  9. AMLODIPINE [Interacting]
     Active Substance: AMLODIPINE BESYLATE
     Indication: HYPERTENSION
     Dosage: 5 MG, DAILY
     Route: 065
  10. INDAPAMIDE. [Interacting]
     Active Substance: INDAPAMIDE
     Indication: HYPERTENSION
     Dosage: 2.5 MG, UNK
     Route: 065

REACTIONS (10)
  - Hepatotoxicity [Recovered/Resolved]
  - Cholestasis [Recovered/Resolved]
  - Diarrhoea [Unknown]
  - Blood alkaline phosphatase increased [Recovered/Resolved]
  - Myalgia [Recovered/Resolved]
  - Cholesterosis [Recovered/Resolved]
  - Hyperleukocytosis [Recovered/Resolved]
  - Drug interaction [Recovered/Resolved]
  - Gout [Recovered/Resolved]
  - Anaemia [Recovered/Resolved]
